FAERS Safety Report 18564047 (Version 1)
Quarter: 2020Q4

REPORT INFORMATION
  Report Type: Spontaneous
  Country: FR (occurrence: FR)
  Receive Date: 20201201
  Receipt Date: 20201201
  Transmission Date: 20210114
  Serious: Yes (Other)
  Sender: FDA-Public Use
  Company Number: FR-CURIUM-202000455

PATIENT
  Age: 37 Year
  Sex: Female
  Weight: 70 kg

DRUGS (2)
  1. CONTRACEPTION [Concomitant]
     Indication: CONTRACEPTION
     Route: 065
  2. SODIUM IODIDE I 131 [Suspect]
     Active Substance: SODIUM IODIDE I-131
     Indication: BASEDOW^S DISEASE
     Route: 048
     Dates: start: 20201009, end: 20201009

REACTIONS (1)
  - Toxic skin eruption [Not Recovered/Not Resolved]

NARRATIVE: CASE EVENT DATE: 20201011
